FAERS Safety Report 13689825 (Version 1)
Quarter: 2017Q2

REPORT INFORMATION
  Report Type: Spontaneous
  Country: GR (occurrence: GR)
  Receive Date: 20170626
  Receipt Date: 20170626
  Transmission Date: 20170830
  Serious: Yes (Other)
  Sender: FDA-Public Use
  Company Number: GR-TEVA-780752ROM

PATIENT
  Age: 11 Year

DRUGS (5)
  1. CLOFARABINE. [Suspect]
     Active Substance: CLOFARABINE
     Indication: ACUTE LYMPHOCYTIC LEUKAEMIA
     Dosage: CHEMOTHERAPY
  2. METHOTREXATE. [Suspect]
     Active Substance: METHOTREXATE
     Dosage: MAINTENANCE TREATMENT
  3. ETOPOSIDE VP-16 [Suspect]
     Active Substance: ETOPOSIDE
     Indication: ACUTE LYMPHOCYTIC LEUKAEMIA
     Dosage: CHEMOTHERAPY
  4. MERCAPTOPURINE 6-MP [Suspect]
     Active Substance: MERCAPTOPURINE
  5. CYCLOPHOSPHAMIDE. [Suspect]
     Active Substance: CYCLOPHOSPHAMIDE
     Indication: ACUTE LYMPHOCYTIC LEUKAEMIA
     Dosage: CHEMOTHERAPY

REACTIONS (3)
  - Aspergillus infection [Recovered/Resolved]
  - Drug ineffective [Unknown]
  - Febrile neutropenia [Recovered/Resolved]
